FAERS Safety Report 16945490 (Version 1)
Quarter: 2019Q4

REPORT INFORMATION
  Report Type: Report from Study
  Country: IT (occurrence: IT)
  Receive Date: 20191022
  Receipt Date: 20191022
  Transmission Date: 20200122
  Serious: Yes (Other)
  Sender: FDA-Public Use
  Company Number: IT-MYLANLABS-2019M1099025

PATIENT
  Age: 87 Year
  Sex: Male

DRUGS (3)
  1. QUETIAPINE. [Suspect]
     Active Substance: QUETIAPINE
     Dosage: 50 MILLIGRAM, TOTAL
     Route: 048
     Dates: start: 20190617
  2. COUMADIN [Concomitant]
     Active Substance: WARFARIN SODIUM
     Indication: ATRIAL FIBRILLATION
     Dosage: UNK
     Route: 048
  3. QUETIAPINE. [Suspect]
     Active Substance: QUETIAPINE
     Indication: PRODUCT USED FOR UNKNOWN INDICATION
     Dosage: 75 MILLIGRAM, TOTAL
     Route: 048
     Dates: start: 20190617, end: 20190617

REACTIONS (4)
  - Sopor [Recovered/Resolved]
  - Drug abuse [Recovered/Resolved]
  - Overdose [Unknown]
  - Sluggishness [Recovered/Resolved]

NARRATIVE: CASE EVENT DATE: 20190617
